FAERS Safety Report 6303423-9 (Version None)
Quarter: 2009Q3

REPORT INFORMATION
  Report Type: 
  Country: None (occurrence: None)
  Receive Date: 20090810
  Receipt Date: 20090729
  Transmission Date: 20100115
  Serious: Yes (Life-Threatening)
  Sender: FDA-Public Use
  Company Number: FR-PFIZER INC-2009227365

PATIENT
  Age: 50 Year

DRUGS (12)
  1. XANAX [Suspect]
     Indication: ANXIETY
     Dosage: 0.50 MG, UNK
  2. XANAX [Suspect]
     Dosage: 0.25 MG, 1X/DAY
  3. NORADRENALINE [Suspect]
     Indication: HYPOTENSION
     Dosage: UNK
     Route: 042
     Dates: start: 20090518, end: 20090518
  4. EFFEXOR [Suspect]
     Indication: DEPRESSION
     Dosage: 14 DF, 1X/DAY
     Route: 048
     Dates: end: 20090518
  5. THERALENE [Suspect]
     Indication: ANXIETY
     Dosage: 15 GTT, 1X/DAY
     Route: 048
     Dates: end: 20090524
  6. HAVLANE [Suspect]
     Indication: ANXIETY
     Dosage: 1 DF, 1X/DAY
     Route: 048
     Dates: end: 20090518
  7. CRESTOR [Concomitant]
     Dosage: 5 MG, 1X/DAY
  8. NEXIUM [Concomitant]
     Dosage: 20 MG, 1X/DAY
  9. PLAVIX [Concomitant]
     Dosage: 75 MG, 1X/DAY
  10. KARDEGIC [Concomitant]
     Dosage: 75 MG, 1X/DAY
  11. VASTAREL [Concomitant]
     Dosage: 35 MG, 2X/DAY
  12. GUTRON [Concomitant]

REACTIONS (3)
  - CARDIAC FAILURE [None]
  - MYOCARDIAL ISCHAEMIA [None]
  - PERICARDITIS [None]
